FAERS Safety Report 12575745 (Version 2)
Quarter: 2016Q3

REPORT INFORMATION
  Report Type: Spontaneous
  Country: US (occurrence: US)
  Receive Date: 20160720
  Receipt Date: 20160801
  Transmission Date: 20161109
  Serious: No
  Sender: FDA-Public Use
  Company Number: US-ACTELION-A-NJ2016-139589

PATIENT
  Age: 64 Year
  Sex: Female

DRUGS (2)
  1. OPSUMIT [Suspect]
     Active Substance: MACITENTAN
     Indication: PULMONARY ARTERIAL HYPERTENSION
     Dosage: 10 MG, QD
     Route: 048
     Dates: start: 20160701
  2. ADCIRCA [Concomitant]
     Active Substance: TADALAFIL

REACTIONS (8)
  - Cough [Unknown]
  - Hypersensitivity [Unknown]
  - Dyspnoea [Unknown]
  - Sinusitis [Unknown]
  - Throat irritation [Unknown]
  - Pulmonary oedema [Unknown]
  - Dizziness [Unknown]
  - Nausea [Unknown]
